FAERS Safety Report 9074844 (Version 1)
Quarter: 2013Q1

REPORT INFORMATION
  Report Type: Report from Study
  Country: US (occurrence: US)
  Receive Date: 20130129
  Receipt Date: 20130129
  Transmission Date: 20140127
  Serious: No
  Sender: FDA-Public Use
  Company Number: US-ABBOTT-12P-163-0939738-00

PATIENT
  Sex: Male
  Weight: 131.66 kg

DRUGS (5)
  1. HUMIRA 40 MG/0.8 ML PEN [Suspect]
     Indication: RHEUMATOID ARTHRITIS
     Route: 058
     Dates: start: 201110, end: 201110
  2. HUMIRA 40 MG/0.8 ML PEN [Suspect]
     Route: 058
     Dates: start: 201205
  3. PREDNISONE [Concomitant]
     Indication: RHEUMATOID ARTHRITIS
  4. METFORMIN [Concomitant]
     Indication: DIABETES MELLITUS
  5. ALEVE [Concomitant]
     Indication: PAIN

REACTIONS (4)
  - Hepatic enzyme increased [Recovering/Resolving]
  - Cystitis [Recovered/Resolved]
  - Sinusitis [Recovered/Resolved]
  - Joint swelling [Not Recovered/Not Resolved]
